FAERS Safety Report 25430324 (Version 1)
Quarter: 2025Q2

REPORT INFORMATION
  Report Type: Spontaneous
  Country: US (occurrence: None)
  Receive Date: 20250612
  Receipt Date: 20250612
  Transmission Date: 20250716
  Serious: No
  Sender: FDA-CTU
  Company Number: None

PATIENT

DRUGS (6)
  1. TEGRETOL [Suspect]
     Active Substance: CARBAMAZEPINE
  2. LAMICTAL [Suspect]
     Active Substance: LAMOTRIGINE
  3. KEPPRA [Suspect]
     Active Substance: LEVETIRACETAM
  4. DEPAKOTE [Suspect]
     Active Substance: DIVALPROEX SODIUM
  5. TOPAMAX [Suspect]
     Active Substance: TOPIRAMATE
  6. TRILEPTAL [Suspect]
     Active Substance: OXCARBAZEPINE

REACTIONS (2)
  - Drug ineffective [None]
  - Tongue biting [None]
